FAERS Safety Report 25256103 (Version 2)
Quarter: 2025Q3

REPORT INFORMATION
  Report Type: Report from Study
  Country: US (occurrence: US)
  Receive Date: 20250430
  Receipt Date: 20250903
  Transmission Date: 20251020
  Serious: Yes (Hospitalization, Other)
  Sender: SUNOVION
  Company Number: US-SMPA-2025SPA004101AA

PATIENT
  Age: 82 Year
  Sex: Male

DRUGS (2)
  1. ORGOVYX [Suspect]
     Active Substance: RELUGOLIX
     Indication: Prostate cancer
     Dosage: 120 MG, QD...STARTED WITH BIOLOGICS
     Route: 048
     Dates: start: 20250308
  2. NUBEQA [Concomitant]
     Active Substance: DAROLUTAMIDE

REACTIONS (6)
  - Pulmonary embolism [Unknown]
  - Nerve compression [Unknown]
  - Nausea [Unknown]
  - Hot flush [Unknown]
  - Insomnia [Unknown]
  - Incorrect dose administered [Recovered/Resolved]
